FAERS Safety Report 12425336 (Version 2)
Quarter: 2016Q3

REPORT INFORMATION
  Report Type: Spontaneous
  Country: US (occurrence: US)
  Receive Date: 20160601
  Receipt Date: 20160706
  Transmission Date: 20161109
  Serious: Yes (Other)
  Sender: FDA-Public Use
  Company Number: US-AMGEN-USASP2016067591

PATIENT
  Age: 83 Year
  Sex: Female
  Weight: 68.93 kg

DRUGS (1)
  1. PROLIA [Suspect]
     Active Substance: DENOSUMAB
     Indication: OSTEOPOROSIS
     Dosage: UNK, Q6MO
     Route: 058
     Dates: start: 201503, end: 201605

REACTIONS (11)
  - Rhinitis [Unknown]
  - Drug intolerance [Unknown]
  - Gait disturbance [Not Recovered/Not Resolved]
  - Asthenia [Unknown]
  - Musculoskeletal discomfort [Not Recovered/Not Resolved]
  - Hip arthroplasty [Unknown]
  - Influenza like illness [Unknown]
  - Pruritus generalised [Unknown]
  - Cough [Unknown]
  - Hypersensitivity [Unknown]
  - Dizziness [Unknown]

NARRATIVE: CASE EVENT DATE: 2016
